FAERS Safety Report 5227033-X (Version None)
Quarter: 2007Q1

REPORT INFORMATION
  Report Type: 
  Country: None (occurrence: None)
  Receive Date: 20070201
  Receipt Date: 20070201
  Transmission Date: 20070707
  Serious: Yes (Hospitalization, Other)
  Sender: FDA-Public Use
  Company Number: None

PATIENT
  Sex: Female
  Weight: 74 kg

DRUGS (4)
  1. DOXIL [Suspect]
     Indication: BREAST CANCER METASTATIC
     Dosage: 20 MG/M2 IV Q. 4 WEEKS
     Route: 042
     Dates: start: 20060822, end: 20061212
  2. LAPATINIB [Suspect]
     Indication: BREAST CANCER METASTATIC
     Dosage: 1500MG P.O. QD
     Route: 048
     Dates: start: 20060822, end: 20070108
  3. LEXAPRO [Concomitant]
  4. MULTI-VITAMIN [Concomitant]

REACTIONS (3)
  - DIZZINESS [None]
  - HEADACHE [None]
  - VERTIGO [None]
